FAERS Safety Report 23229288 (Version 2)
Quarter: 2023Q4

REPORT INFORMATION
  Report Type: Report from Study
  Country: CH (occurrence: CH)
  Receive Date: 20231127
  Receipt Date: 20231202
  Transmission Date: 20240109
  Serious: Yes (Hospitalization, Other)
  Sender: FDA-Public Use
  Company Number: CH-ABBVIE-5506606

PATIENT
  Age: 78 Year
  Sex: Female

DRUGS (5)
  1. CARBIDOPA\LEVODOPA [Suspect]
     Active Substance: CARBIDOPA\LEVODOPA
     Indication: Parkinson^s disease
     Dosage: FREQUENCY TEXT: 24H THERAPY
     Route: 050
     Dates: start: 20210419
  2. CARBIDOPA\LEVODOPA [Suspect]
     Active Substance: CARBIDOPA\LEVODOPA
     Dosage: MD: 4.5 ML, CRD: 2.9 ML/H, AD: 3.1ML, CRN: 1.8 ML/H, ED: 0.8 ML, ?FREQUENCY TEXT: 24H THERAPY
     Route: 050
     Dates: start: 20230210, end: 20230321
  3. CARBIDOPA\LEVODOPA [Suspect]
     Active Substance: CARBIDOPA\LEVODOPA
     Dosage: MD: 4.5 ML, CRD: 2.9 ML/H, AD: 3.3ML, CRN: 1.8 ML/H, ED: 0.8 ML, ?FREQUENCY TEXT: 24H THERAPY
     Route: 050
     Dates: start: 20230321, end: 20230804
  4. CARBIDOPA\LEVODOPA [Suspect]
     Active Substance: CARBIDOPA\LEVODOPA
     Dosage: MD: 4.5 ML, CRD: 2.9 ML/H, CRN: 1.8 ML/H, ED: 0.8 ML, ?24H THERAPY
     Route: 050
     Dates: start: 20230208, end: 20230210
  5. CARBIDOPA\LEVODOPA [Suspect]
     Active Substance: CARBIDOPA\LEVODOPA
     Dosage: MD: 3.0 ML, CRD: 2.9 ML/H, AD: 3.3ML, CRN: 1.8 ML/H, ED: 0.8 ML,?FREQUENCY TEXT: 24H THERAPY
     Route: 050
     Dates: start: 20230804

REACTIONS (14)
  - Cerebrovascular accident [Not Recovered/Not Resolved]
  - Delusion [Not Recovered/Not Resolved]
  - Product administration error [Unknown]
  - Akinesia [Not Recovered/Not Resolved]
  - Device dislocation [Recovered/Resolved]
  - Incorrect dose administered [Not Recovered/Not Resolved]
  - Confusional state [Not Recovered/Not Resolved]
  - Suspected COVID-19 [Not Recovered/Not Resolved]
  - Dyskinesia [Recovering/Resolving]
  - Nasopharyngitis [Not Recovered/Not Resolved]
  - Hyporesponsive to stimuli [Not Recovered/Not Resolved]
  - Bradykinesia [Recovering/Resolving]
  - Tremor [Recovering/Resolving]
  - Hallucination [Not Recovered/Not Resolved]

NARRATIVE: CASE EVENT DATE: 20231101
